FAERS Safety Report 9593186 (Version 1)
Quarter: 2013Q4

REPORT INFORMATION
  Report Type: Spontaneous
  Country: CA (occurrence: CA)
  Receive Date: 20131004
  Receipt Date: 20131004
  Transmission Date: 20140711
  Serious: Yes (Other)
  Sender: FDA-Public Use
  Company Number: PHHY2013CA107939

PATIENT
  Age: 69 Year
  Sex: Male

DRUGS (4)
  1. GABAPENTIN [Suspect]
     Indication: ESSENTIAL TREMOR
     Dosage: 300 MG AT BED TIME ON DAY 1
  2. GABAPENTIN [Suspect]
     Indication: OFF LABEL USE
     Dosage: 300 MG, BID ON DAY 2
  3. GABAPENTIN [Suspect]
     Dosage: 300 MG, TID, ON DAY 3
  4. GABAPENTIN [Suspect]
     Dosage: 1500 MG DAILY

REACTIONS (5)
  - Myasthenia gravis [Recovered/Resolved]
  - Muscular weakness [Recovered/Resolved]
  - Eyelid ptosis [Recovered/Resolved]
  - Mastication disorder [Recovered/Resolved]
  - Diplopia [Recovered/Resolved]
